FAERS Safety Report 15865124 (Version 2)
Quarter: 2019Q1

REPORT INFORMATION
  Report Type: Spontaneous
  Country: US (occurrence: US)
  Receive Date: 20190124
  Receipt Date: 20190312
  Transmission Date: 20190417
  Serious: No
  Sender: FDA-Public Use
  Company Number: US-009507513-1812USA012059

PATIENT
  Age: 59 Year
  Sex: Male

DRUGS (2)
  1. ASMANEX [Suspect]
     Active Substance: MOMETASONE FUROATE
     Dosage: UNK
  2. ASMANEX [Suspect]
     Active Substance: MOMETASONE FUROATE
     Dosage: UNK
     Route: 055

REACTIONS (8)
  - Poor quality product administered [Unknown]
  - Underdose [Unknown]
  - Respiratory disorder [Unknown]
  - Product quality issue [Unknown]
  - Product quality issue [Unknown]
  - Product dose omission [Unknown]
  - Extra dose administered [Unknown]
  - Product supply issue [Not Recovered/Not Resolved]

NARRATIVE: CASE EVENT DATE: 20181224
